FAERS Safety Report 6947541-0 (Version None)
Quarter: 2010Q3

REPORT INFORMATION
  Report Type: 
  Country: None (occurrence: None)
  Receive Date: 20100827
  Receipt Date: 20090916
  Transmission Date: 20110219
  Serious: No
  Sender: FDA-Public Use
  Company Number: US-ABBOTT-09P-163-0598242-00

PATIENT
  Sex: Female
  Weight: 83.99 kg

DRUGS (8)
  1. NIASPAN [Suspect]
     Indication: BLOOD CHOLESTEROL INCREASED
     Dates: start: 20090901
  2. NIASPAN [Suspect]
     Indication: HIGH DENSITY LIPOPROTEIN DECREASED
  3. DILTIAZEM [Concomitant]
     Indication: HYPERTENSION
  4. MULTIPLE VITAMINS [Concomitant]
     Indication: ROUTINE HEALTH MAINTENANCE
  5. FISH OIL [Concomitant]
     Indication: ROUTINE HEALTH MAINTENANCE
  6. TUMS [Concomitant]
     Indication: ROUTINE HEALTH MAINTENANCE
  7. UNKNOWN ANTIHISTAMINE [Concomitant]
     Indication: HYPERSENSITIVITY
  8. NASACORT AQ [Concomitant]
     Indication: HYPERSENSITIVITY

REACTIONS (2)
  - FLUSHING [None]
  - VEIN DISCOLOURATION [None]
